FAERS Safety Report 10167624 (Version 2)
Quarter: 2014Q3

REPORT INFORMATION
  Report Type: Report from Study
  Country: DE (occurrence: DE)
  Receive Date: 20140512
  Receipt Date: 20140721
  Transmission Date: 20150326
  Serious: Yes (Death, Hospitalization, Other)
  Sender: FDA-Public Use
  Company Number: DE-ASTELLAS-2014US005231

PATIENT
  Age: 71 Year
  Sex: Male
  Weight: 56 kg

DRUGS (3)
  1. ERLOTINIB [Suspect]
     Active Substance: ERLOTINIB
     Indication: LUNG NEOPLASM MALIGNANT
  2. ERLOTINIB [Suspect]
     Active Substance: ERLOTINIB
     Indication: NON-SMALL CELL LUNG CANCER
     Route: 048
     Dates: start: 20120308, end: 20120410
  3. DOCETAXEL [Concomitant]
     Active Substance: DOCETAXEL
     Indication: PRODUCT USED FOR UNKNOWN INDICATION
     Dosage: UNK UNK, UNKNOWN FREQ.
     Route: 065
     Dates: start: 20120422

REACTIONS (14)
  - Cachexia [Fatal]
  - Respiratory failure [Fatal]
  - Fatigue [Fatal]
  - Malignant neoplasm progression [Fatal]
  - Epistaxis [Unknown]
  - Sputum discoloured [Unknown]
  - Metastases to liver [Fatal]
  - Hypoxia [Fatal]
  - Dyspnoea at rest [Not Recovered/Not Resolved]
  - Cough [Unknown]
  - Haemorrhagic anaemia [Unknown]
  - Pneumonia [Fatal]
  - Haemoptysis [Recovering/Resolving]
  - Anaemia [Fatal]

NARRATIVE: CASE EVENT DATE: 20120410
